FAERS Safety Report 7408138-1 (Version None)
Quarter: 2011Q2

REPORT INFORMATION
  Report Type: 
  Country: None (occurrence: None)
  Receive Date: 20110412
  Receipt Date: 20110330
  Transmission Date: 20111010
  Serious: Yes (Hospitalization, Disabling)
  Sender: FDA-Public Use
  Company Number: US-JNJFOC-20110400186

PATIENT
  Age: 38 Year
  Sex: Female
  Weight: 77.11 kg

DRUGS (2)
  1. TOPAMAX [Suspect]
     Indication: CONVULSION
     Dosage: 25 MG TWO TO THREE TIMES A DAY
     Route: 048
  2. TOPAMAX [Suspect]
     Indication: MUSCLE SPASMS
     Dosage: 25 MG TWO TO THREE TIMES A DAY
     Route: 048

REACTIONS (6)
  - CONVULSION [None]
  - HYPOKINESIA [None]
  - FEELING ABNORMAL [None]
  - THERAPEUTIC RESPONSE INCREASED [None]
  - SOMNOLENCE [None]
  - WRONG TECHNIQUE IN DRUG USAGE PROCESS [None]
